FAERS Safety Report 10434700 (Version 1)
Quarter: 2014Q2

REPORT INFORMATION
  Report Type: Spontaneous
  Country: US (occurrence: None)
  Receive Date: 20140530
  Receipt Date: 20140530
  Transmission Date: 20141212
  Serious: Yes (Other)
  Sender: FDA-Public Use
  Company Number: 2012032312

PATIENT
  Age: 72 Year
  Sex: Female
  Weight: 72.58 kg

DRUGS (15)
  1. HIZENTRA (IMMUNOGLOBULIN HUMAN NORMAL) [Suspect]
     Indication: HYPOGLOBULINAEMIA
     Dosage: (3-4 SITES SUBCUTANEOUS), (12 G 1X/WEEK, 3-4 SITES SUBCUTANEOUS)
     Dates: start: 20101108
  2. HIZENTRA (IMMUNOGLOBULIN HUMAN NORMAL) [Suspect]
     Indication: IMMUNODEFICIENCY COMMON VARIABLE
     Dosage: (3-4 SITES SUBCUTANEOUS), (12 G 1X/WEEK, 3-4 SITES SUBCUTANEOUS)
     Dates: start: 20101108
  3. XANAX (ALPRAZOLAM) [Concomitant]
  4. NASACORT (TRIAMCINOLONE ACETONIDE) [Concomitant]
  5. SIMVASTATIN [Concomitant]
  6. PROVENTIL (SALBUTAMOL) [Concomitant]
  7. PAXIL (PAROXETINE HYDROCHLORIDE) [Concomitant]
  8. FLUCONAZOLE [Concomitant]
  9. DIPHENHYDRAMINE [Concomitant]
  10. HYDROCODONE APAP (VICODIN) [Concomitant]
  11. SYMBICORT (BUDESONIDE W/FORMOTEROL FUMARATE) [Concomitant]
  12. MECLIZINE [Concomitant]
  13. PRILOSEC (OMEPRAZOLE) [Concomitant]
  14. CLARITHROMYCIN [Concomitant]
  15. TYLENOL EXTRA STRENGTH (PARACETAMOL) [Concomitant]

REACTIONS (1)
  - Renal impairment [None]
